FAERS Safety Report 8651630 (Version 3)
Quarter: 2012Q4

REPORT INFORMATION
  Report Type: 
  Country: FR (occurrence: FR)
  Receive Date: 20120706
  Receipt Date: 20121005
  Transmission Date: 20130627
  Serious: Yes (Hospitalization)
  Sender: FDA-Public Use
  Company Number: FR-ABBOTT-12P-056-0951107-00

PATIENT
  Age: 81 Year
  Sex: Male

DRUGS (3)
  1. HUMIRA 40 MG/ 0.8 ML PRE-FILLED SYRINGE [Suspect]
     Indication: PSORIASIS
     Dosage: 40mg once
     Route: 058
     Dates: start: 20120615
  2. ZOCOR [Concomitant]
     Indication: ANGINA PECTORIS
     Dosage: Long standing treatment
  3. KARDEGIC [Concomitant]
     Indication: ANGINA PECTORIS
     Dosage: Long standing treatment

REACTIONS (1)
  - Pemphigoid [Recovered/Resolved]
